FAERS Safety Report 20802514 (Version 1)
Quarter: 2022Q2

REPORT INFORMATION
  Report Type: Spontaneous
  Country: US (occurrence: None)
  Receive Date: 20220509
  Receipt Date: 20220509
  Transmission Date: 20220720
  Serious: No
  Sender: FDA-Public Use
  Company Number: None

PATIENT
  Age: 68 Year
  Sex: Female

DRUGS (1)
  1. NIRMATRELVIR\RITONAVIR [Suspect]
     Active Substance: NIRMATRELVIR\RITONAVIR
     Indication: COVID-19
     Dosage: BID PO
     Route: 048
     Dates: start: 20220412, end: 20220419

REACTIONS (2)
  - Intercepted product dispensing error [None]
  - Product prescribing error [None]

NARRATIVE: CASE EVENT DATE: 20220414
